APPROVED DRUG PRODUCT: POTASSIUM CHLORIDE 0.15% IN DEXTROSE 3.3% AND SODIUM CHLORIDE 0.3% IN PLASTIC CONTAINER
Active Ingredient: DEXTROSE; POTASSIUM CHLORIDE; SODIUM CHLORIDE
Strength: 3.3GM/100ML;150MG/100ML;300MG/100ML
Dosage Form/Route: INJECTABLE;INJECTION
Application: N019630 | Product #051
Applicant: B BRAUN MEDICAL INC
Approved: May 7, 1992 | RLD: No | RS: No | Type: RX